FAERS Safety Report 5444549-1 (Version None)
Quarter: 2007Q3

REPORT INFORMATION
  Report Type: 
  Country: None (occurrence: None)
  Receive Date: 20070906
  Receipt Date: 20070829
  Transmission Date: 20080115
  Serious: Yes (Other)
  Sender: FDA-Public Use
  Company Number: US-AVENTIS-200711017US

PATIENT
  Sex: Female

DRUGS (1)
  1. ARAVA [Suspect]
     Dates: start: 20061001

REACTIONS (1)
  - HYPOTENSION [None]
